FAERS Safety Report 4931923-2 (Version None)
Quarter: 2006Q1

REPORT INFORMATION
  Report Type: 
  Country: None (occurrence: None)
  Receive Date: 20060303
  Receipt Date: 20030605
  Transmission Date: 20060701
  Serious: Yes (Hospitalization, Disabling)
  Sender: FDA-Public Use
  Company Number: US-MERCK-0306USA00891

PATIENT
  Age: 57 Year
  Sex: Male
  Weight: 84 kg

DRUGS (8)
  1. VIOXX [Suspect]
     Indication: BACK PAIN
     Route: 048
     Dates: start: 20010413, end: 20020727
  2. VIOXX [Suspect]
     Route: 048
     Dates: start: 20020627
  3. PAXIL [Concomitant]
     Route: 048
     Dates: start: 19991229
  4. NORVASC [Concomitant]
     Route: 048
     Dates: start: 19991229
  5. LABETALOL HYDROCHLORIDE [Concomitant]
     Route: 065
     Dates: start: 19991229
  6. HYZAAR [Concomitant]
     Route: 065
     Dates: start: 19991229
  7. HUMULIN 70/30 [Concomitant]
     Route: 058
     Dates: start: 19991229, end: 20000827
  8. HUMULIN 70/30 [Concomitant]
     Route: 058
     Dates: start: 19991229, end: 20000827

REACTIONS (31)
  - ADVERSE EVENT [None]
  - AORTIC ANEURYSM [None]
  - AORTIC DISSECTION [None]
  - ARTHRALGIA [None]
  - ASTHENIA [None]
  - BACK PAIN [None]
  - BLOOD GLUCOSE INCREASED [None]
  - CARDIOMEGALY [None]
  - CHEST PAIN [None]
  - DIZZINESS [None]
  - DRUG ABUSER [None]
  - DYSPEPSIA [None]
  - EYE DISORDER [None]
  - HEADACHE [None]
  - HYPERTENSION [None]
  - HYPOAESTHESIA [None]
  - JOINT STIFFNESS [None]
  - LOWER RESPIRATORY TRACT INFECTION [None]
  - OBESITY [None]
  - OEDEMA PERIPHERAL [None]
  - PAIN [None]
  - PAIN IN EXTREMITY [None]
  - PALPITATIONS [None]
  - PARAESTHESIA [None]
  - PENILE PAIN [None]
  - PLEURAL DISORDER [None]
  - POLYTRAUMATISM [None]
  - RENAL CYST [None]
  - SWELLING [None]
  - VISION BLURRED [None]
  - WEIGHT INCREASED [None]
